FAERS Safety Report 8111346-8 (Version None)
Quarter: 2012Q1

REPORT INFORMATION
  Report Type: 
  Country: None (occurrence: None)
  Receive Date: 20120203
  Receipt Date: 20110919
  Transmission Date: 20120608
  Serious: No
  Sender: FDA-Public Use
  Company Number: US-GLAXOSMITHKLINE-A0945150A

PATIENT
  Age: 21 Year
  Sex: Female

DRUGS (3)
  1. AMBIEN [Concomitant]
  2. BIRTH CONTROL PILLS [Suspect]
  3. LAMICTAL [Suspect]
     Indication: BIPOLAR DISORDER
     Dosage: 125MG TWICE PER DAY
     Route: 048
     Dates: start: 20100101

REACTIONS (1)
  - RASH [None]
